FAERS Safety Report 8262366-4 (Version None)
Quarter: 2012Q2

REPORT INFORMATION
  Report Type: 
  Country: None (occurrence: None)
  Receive Date: 20120405
  Receipt Date: 20120322
  Transmission Date: 20120825
  Serious: Yes (Hospitalization)
  Sender: FDA-Public Use
  Company Number: DE-BAUSCH-2012BL002079

PATIENT
  Age: 35 Year
  Sex: Male
  Weight: 70 kg

DRUGS (2)
  1. GENTAMICIN SULFATE [Suspect]
     Indication: CONJUNCTIVITIS
     Route: 047
     Dates: start: 20120318, end: 20120318
  2. IBUPROFEN [Concomitant]
     Indication: PRODUCT USED FOR UNKNOWN INDICATION
     Dates: start: 20120318

REACTIONS (1)
  - ANGIOEDEMA [None]
